FAERS Safety Report 9203634 (Version 1)
Quarter: 2013Q2

REPORT INFORMATION
  Report Type: Spontaneous
  Country: US (occurrence: US)
  Receive Date: 20130402
  Receipt Date: 20130402
  Transmission Date: 20140414
  Serious: Yes (Other)
  Sender: FDA-Public Use
  Company Number: US-AMGEN-USASP2013021351

PATIENT
  Age: 38 Year
  Sex: Female

DRUGS (3)
  1. ARANESP [Suspect]
     Indication: RENAL FAILURE
     Dosage: UNK UNK, QMO
     Dates: start: 1998
  2. PROGRAF [Concomitant]
  3. IRON [Concomitant]

REACTIONS (5)
  - Premature labour [Recovered/Resolved]
  - Blood iron decreased [Unknown]
  - Influenza [Unknown]
  - Malaise [Unknown]
  - Urinary tract infection [Unknown]
